FAERS Safety Report 22248924 (Version 2)
Quarter: 2025Q1

REPORT INFORMATION
  Report Type: Spontaneous
  Country: DE (occurrence: DE)
  Receive Date: 20230425
  Receipt Date: 20250214
  Transmission Date: 20250408
  Serious: No
  Sender: ALKEM
  Company Number: DE-ALKEM LABORATORIES LIMITED-DE-ALKEM-2023-02714

PATIENT
  Age: 42 Year
  Sex: Female
  Weight: 90 kg

DRUGS (12)
  1. FINGOLIMOD [Suspect]
     Active Substance: FINGOLIMOD
     Indication: Relapsing multiple sclerosis
     Dosage: 0.56 MILLIGRAM, QD (EVERY 1 DAY)
     Route: 048
     Dates: start: 20210204, end: 20210427
  2. OCREVUS [Suspect]
     Active Substance: OCRELIZUMAB
     Indication: Relapsing multiple sclerosis
     Route: 042
     Dates: start: 20210819, end: 20210902
  3. OCREVUS [Suspect]
     Active Substance: OCRELIZUMAB
     Route: 042
     Dates: start: 20220303
  4. BACLOFEN [Concomitant]
     Active Substance: BACLOFEN
     Indication: Hypertonia
     Dosage: 25 MILLIGRAM, QD
     Route: 048
     Dates: start: 20201214
  5. BACLOFEN [Concomitant]
     Active Substance: BACLOFEN
     Route: 048
  6. Comirnaty [Concomitant]
     Indication: COVID-19 immunisation
     Dosage: UNK, QD (EVERY 1 DAY)
     Route: 030
     Dates: start: 20210512, end: 20210512
  7. Comirnaty [Concomitant]
     Dosage: UNK, QD (EVERY 1 DAY)
     Route: 030
     Dates: start: 20210625, end: 20210625
  8. IBUPROFEN [Concomitant]
     Active Substance: IBUPROFEN
     Indication: Prophylaxis
     Route: 065
  9. DESOGESTREL [Concomitant]
     Active Substance: DESOGESTREL
     Indication: Contraception
     Dosage: UNK, QD (EVERY 1 DAY)
     Route: 048
  10. PFIZER-BIONTECH COVID-19 VACCINE [Concomitant]
     Active Substance: TOZINAMERAN
     Indication: COVID-19 immunisation
     Dosage: UNK, QD (EVERY 1 DAY)
     Route: 030
     Dates: start: 20211221, end: 20211221
  11. PFIZER-BIONTECH COVID-19 VACCINE [Concomitant]
     Active Substance: TOZINAMERAN
     Dosage: 400 MILLIGRAM, QD (EVERY 1 DAY)
     Route: 030
     Dates: start: 20220506, end: 20220506
  12. PFIZER-BIONTECH COVID-19 VACCINE [Concomitant]
     Active Substance: TOZINAMERAN
     Dosage: UNK, QD (EVERY 1 DAY)
     Route: 030
     Dates: start: 20221118, end: 20221118

REACTIONS (18)
  - Pollakiuria [Unknown]
  - Anxiety [Unknown]
  - Panic attack [Unknown]
  - Aphthous ulcer [Unknown]
  - Joint swelling [Recovered/Resolved]
  - Fatigue [Recovered/Resolved]
  - Blood alkaline phosphatase increased [Recovered/Resolved]
  - Intermenstrual bleeding [Recovered/Resolved]
  - Persistent depressive disorder [Unknown]
  - Mean cell haemoglobin concentration increased [Recovered/Resolved]
  - T-lymphocyte count decreased [Unknown]
  - White blood cell count decreased [Recovered/Resolved]
  - Alanine aminotransferase increased [Recovered/Resolved]
  - Aspartate aminotransferase increased [Recovered/Resolved]
  - Blood bilirubin increased [Recovered/Resolved]
  - Aspartate aminotransferase increased [Recovered/Resolved]
  - Lymphocyte count decreased [Recovered/Resolved]
  - Urinary tract infection [Recovered/Resolved]

NARRATIVE: CASE EVENT DATE: 20210211
